FAERS Safety Report 6371270-8 (Version None)
Quarter: 2009Q3

REPORT INFORMATION
  Report Type: 
  Country: None (occurrence: None)
  Receive Date: 20090923
  Receipt Date: 20070719
  Transmission Date: 20100115
  Serious: No
  Sender: FDA-Public Use
  Company Number: US-ASTRAZENECA-2006UW27667

PATIENT
  Age: 595 Month
  Sex: Female
  Weight: 90.7 kg

DRUGS (15)
  1. SEROQUEL [Suspect]
     Indication: NERVOUSNESS
     Dosage: 25 MG TO 900 MG
     Route: 048
     Dates: start: 20030101
  2. SEROQUEL [Suspect]
     Indication: THINKING ABNORMAL
     Dosage: 25 MG TO 900 MG
     Route: 048
     Dates: start: 20030101
  3. SEROQUEL [Suspect]
     Dosage: 25-400 MG
     Route: 048
     Dates: start: 20040719
  4. SEROQUEL [Suspect]
     Dosage: 25-400 MG
     Route: 048
     Dates: start: 20040719
  5. EFFEXOR [Concomitant]
     Dates: start: 20040101
  6. LEXAPRO [Concomitant]
     Dates: start: 20040101
  7. ZYPREXA [Concomitant]
     Dates: start: 20030101
  8. KLONOPIN [Concomitant]
     Indication: DEPRESSION
     Dosage: 1-2 MG
     Dates: start: 20021113
  9. KLONOPIN [Concomitant]
     Indication: ANXIETY
     Dosage: 1-2 MG
     Dates: start: 20021113
  10. WELLBUTRIN SR [Concomitant]
     Dosage: 100-200 MG
     Dates: start: 20021113
  11. ZOLOFT [Concomitant]
     Dates: start: 20030321
  12. PROTONIX [Concomitant]
     Dates: start: 20030321
  13. TRAZODONE [Concomitant]
     Indication: INSOMNIA
     Route: 048
     Dates: start: 20030401
  14. TRILEPTA [Concomitant]
     Dosage: 150-300 MG
     Dates: start: 20030402
  15. NEURONTIN [Concomitant]
     Indication: MOOD SWINGS
     Dosage: 900-1800 MG
     Route: 048
     Dates: start: 20030911

REACTIONS (3)
  - DIABETES MELLITUS [None]
  - SPINAL OSTEOARTHRITIS [None]
  - TYPE 2 DIABETES MELLITUS [None]
